FAERS Safety Report 17286507 (Version 1)
Quarter: 2020Q1

REPORT INFORMATION
  Report Type: Spontaneous
  Country: US (occurrence: US)
  Receive Date: 20191228
  Receipt Date: 20191228
  Transmission Date: 20200409
  Serious: No
  Sender: FDA-Public Use
  Company Number: None

PATIENT
  Age: 30 Month
  Sex: Female

DRUGS (1)
  1. SILDENAFIL 10MG/ML PW SUS (112ML) [Suspect]
     Active Substance: SILDENAFIL
     Indication: PULMONARY HYPERTENSION
     Route: 048
     Dates: start: 201903

REACTIONS (2)
  - Wrong technique in device usage process [None]
  - Accidental overdose [None]

NARRATIVE: CASE EVENT DATE: 20191228
